FAERS Safety Report 26120423 (Version 1)
Quarter: 2025Q4

REPORT INFORMATION
  Report Type: Spontaneous
  Country: US (occurrence: US)
  Receive Date: 20251204
  Receipt Date: 20251204
  Transmission Date: 20260117
  Serious: No
  Sender: ACCORD
  Company Number: US-Accord-481000

PATIENT
  Sex: Female

DRUGS (1)
  1. LEVOTHYROXINE [Suspect]
     Active Substance: LEVOTHYROXINE
     Indication: Product used for unknown indication

REACTIONS (9)
  - Swollen tongue [Unknown]
  - Swelling face [Unknown]
  - Pharyngeal swelling [Unknown]
  - Abdominal distension [Unknown]
  - Pain [Unknown]
  - Dysgeusia [Unknown]
  - Abdominal pain [Unknown]
  - Nausea [Unknown]
  - Allergic reaction to excipient [Unknown]
